FAERS Safety Report 19023626 (Version 1)
Quarter: 2021Q1

REPORT INFORMATION
  Report Type: Spontaneous
  Country: US (occurrence: US)
  Receive Date: 20210317
  Receipt Date: 20210317
  Transmission Date: 20210420
  Serious: No
  Sender: FDA-Public Use
  Company Number: US-SA-2021SA077214

PATIENT
  Sex: Female

DRUGS (2)
  1. MULTAQ [Suspect]
     Active Substance: DRONEDARONE
     Route: 065
  2. MELATONIN [Suspect]
     Active Substance: MELATONIN
     Dosage: UNKNOWN
     Route: 065

REACTIONS (1)
  - Restlessness [Unknown]
